FAERS Safety Report 8001451-9 (Version None)
Quarter: 2011Q4

REPORT INFORMATION
  Report Type: 
  Country: None (occurrence: None)
  Receive Date: 20111222
  Receipt Date: 20111216
  Transmission Date: 20120403
  Serious: Yes (Hospitalization)
  Sender: FDA-Public Use
  Company Number: SE-JNJFOC-20111207376

PATIENT
  Sex: Male

DRUGS (2)
  1. STELARA [Suspect]
     Indication: PSORIASIS
     Route: 058
  2. ALL OTHER THERAPEUTIC PRODUCTS [Concomitant]
     Indication: PSORIASIS

REACTIONS (1)
  - SICK SINUS SYNDROME [None]
